FAERS Safety Report 23189458 (Version 1)
Quarter: 2023Q4

REPORT INFORMATION
  Report Type: Spontaneous
  Country: CA (occurrence: CA)
  Receive Date: 20231116
  Receipt Date: 20231116
  Transmission Date: 20240110
  Serious: Yes (Hospitalization)
  Sender: FDA-Public Use
  Company Number: CA-TEVA-2022-CA-2026627

PATIENT
  Age: 38 Year
  Sex: Male

DRUGS (4)
  1. TEMOZOLOMIDE [Suspect]
     Active Substance: TEMOZOLOMIDE
     Indication: Oligodendroglioma
     Route: 065
  2. COVID-19 VACCINE [Concomitant]
  3. LEVETIRACETAM [Concomitant]
     Active Substance: LEVETIRACETAM
     Route: 065
  4. SEPTRA [Concomitant]
     Active Substance: SULFAMETHOXAZOLE\TRIMETHOPRIM

REACTIONS (3)
  - Herpes zoster [Unknown]
  - SARS-CoV-2 test positive [Unknown]
  - Thrombocytopenia [Unknown]
